FAERS Safety Report 6901765-7 (Version None)
Quarter: 2010Q3

REPORT INFORMATION
  Report Type: 
  Country: None (occurrence: None)
  Receive Date: 20100803
  Receipt Date: 20100721
  Transmission Date: 20110219
  Serious: Yes (Hospitalization, Other)
  Sender: FDA-Public Use
  Company Number: US-ELI_LILLY_AND_COMPANY-US201007006387

PATIENT
  Sex: Male

DRUGS (3)
  1. GEMZAR [Suspect]
     Indication: BONE SARCOMA
  2. DOCETAXEL [Concomitant]
     Dates: end: 20100618
  3. MEPACT [Concomitant]
     Indication: BONE SARCOMA
     Route: 042
     Dates: start: 20100511, end: 20100629

REACTIONS (10)
  - BLOOD ALKALINE PHOSPHATASE [None]
  - BLOOD SODIUM ABNORMAL [None]
  - CARDIOMEGALY [None]
  - NAUSEA [None]
  - OEDEMA GENITAL [None]
  - OEDEMA PERIPHERAL [None]
  - OFF LABEL USE [None]
  - PERICARDIAL EFFUSION [None]
  - PLEURAL EFFUSION [None]
  - PYREXIA [None]
